FAERS Safety Report 14616460 (Version 2)
Quarter: 2018Q1

REPORT INFORMATION
  Report Type: Spontaneous
  Country: US (occurrence: US)
  Receive Date: 20180309
  Receipt Date: 20180315
  Transmission Date: 20180509
  Serious: No
  Sender: FDA-Public Use
  Company Number: US-PFIZER INC-2018095541

PATIENT
  Age: 56 Year
  Sex: Female
  Weight: 72.57 kg

DRUGS (1)
  1. EUCRISA [Suspect]
     Active Substance: CRISABOROLE
     Indication: ECZEMA
     Dosage: UNK
     Dates: start: 2017, end: 201802

REACTIONS (3)
  - Application site erythema [Not Recovered/Not Resolved]
  - Burning sensation [Recovered/Resolved]
  - Hypersensitivity [Recovered/Resolved]

NARRATIVE: CASE EVENT DATE: 201712
